FAERS Safety Report 15014852 (Version 1)
Quarter: 2018Q2

REPORT INFORMATION
  Report Type: Spontaneous
  Country: US (occurrence: US)
  Receive Date: 20180615
  Receipt Date: 20180615
  Transmission Date: 20180711
  Serious: Yes (Hospitalization, Other)
  Sender: FDA-Public Use
  Company Number: US-AUROBINDO-AUR-APL-2018-031660

PATIENT
  Age: 10 Year
  Sex: Male
  Weight: 33.1 kg

DRUGS (3)
  1. GUANFACINE. [Concomitant]
     Active Substance: GUANFACINE
     Indication: AUTISM SPECTRUM DISORDER
     Dosage: 1 MG 4 TIMES DAILY
  2. ARIPIPRAZOLE. [Suspect]
     Active Substance: ARIPIPRAZOLE
     Indication: AUTISM SPECTRUM DISORDER
     Dosage: NIGHTLY AT BEDTIME
     Route: 065
  3. OXCARBAZEPINE. [Interacting]
     Active Substance: OXCARBAZEPINE
     Indication: AUTISM SPECTRUM DISORDER
     Dosage: 600 MG TWICE DAILY
     Route: 065

REACTIONS (4)
  - Aggression [Recovered/Resolved]
  - Drug ineffective [Recovered/Resolved]
  - Drug interaction [Unknown]
  - Affective disorder [Recovered/Resolved]
